FAERS Safety Report 17660057 (Version 1)
Quarter: 2020Q2

REPORT INFORMATION
  Report Type: Other
  Country: RU (occurrence: RU)
  Receive Date: 20200413
  Receipt Date: 20200413
  Transmission Date: 20200713
  Serious: Yes (Other)
  Sender: FDA-Public Use
  Company Number: RU-GLENMARK PHARMACEUTICALS-2020GMK047254

PATIENT

DRUGS (2)
  1. LEVOFLOXACIN HEMIHYDRATE [Suspect]
     Active Substance: LEVOFLOXACIN
     Indication: TRACHEITIS
     Dosage: UNK
     Route: 048
     Dates: start: 20200310, end: 20200314
  2. BROMHEXINE [Concomitant]
     Active Substance: BROMHEXINE
     Indication: TRACHEITIS
     Dosage: UNK
     Route: 048
     Dates: start: 20200309, end: 20200314

REACTIONS (4)
  - Irritability [Unknown]
  - Decreased appetite [Unknown]
  - Insomnia [Recovered/Resolved]
  - Abdominal pain upper [Unknown]

NARRATIVE: CASE EVENT DATE: 20200311
